FAERS Safety Report 11746489 (Version 1)
Quarter: 2015Q4

REPORT INFORMATION
  Report Type: Spontaneous
  Country: SE (occurrence: SE)
  Receive Date: 20151117
  Receipt Date: 20151117
  Transmission Date: 20160304
  Serious: Yes (Other)
  Sender: FDA-Public Use
  Company Number: SE-VIIV HEALTHCARE LIMITED-SE2015161848

PATIENT
  Age: 46 Year
  Sex: Male

DRUGS (4)
  1. TRUVADA [Concomitant]
     Active Substance: EMTRICITABINE\TENOFOVIR DISOPROXIL FUMARATE
  2. TIVICAY [Suspect]
     Active Substance: DOLUTEGRAVIR SODIUM
     Indication: HIV INFECTION
     Dosage: ^DOSAGE 1^
     Route: 048
     Dates: start: 20140822, end: 20150928
  3. SOVALDI [Concomitant]
     Active Substance: SOFOSBUVIR
     Dates: start: 20141112, end: 20150306
  4. DAKLINZA [Concomitant]
     Active Substance: DACLATASVIR
     Dates: start: 20141112, end: 20150306

REACTIONS (1)
  - Cystitis [Recovered/Resolved]

NARRATIVE: CASE EVENT DATE: 20150101
